FAERS Safety Report 24810004 (Version 2)
Quarter: 2025Q1

REPORT INFORMATION
  Report Type: Spontaneous
  Country: US (occurrence: US)
  Receive Date: 20250106
  Receipt Date: 20250120
  Transmission Date: 20250409
  Serious: Yes (Other)
  Sender: PFIZER
  Company Number: US-PFIZER INC-202500001106

PATIENT
  Age: 39 Year
  Sex: Female
  Weight: 36.281 kg

DRUGS (9)
  1. PAXLOVID [Interacting]
     Active Substance: NIRMATRELVIR\RITONAVIR
     Indication: COVID-19 treatment
     Dosage: [NIRMATRELVIR 150 MG]/[RITONAVIR 100 MG]; 2X/DAY
     Route: 048
     Dates: start: 20241215, end: 20241217
  2. TACROLIMUS [Interacting]
     Active Substance: TACROLIMUS
     Indication: Lupus nephritis
     Dosage: 1.5 MG, 2X/DAY
     Route: 048
  3. SYNTHROID [Concomitant]
     Active Substance: LEVOTHYROXINE SODIUM
     Indication: Thyroid cancer
     Dosage: 112 UG, WEEKLY; 9 PILLS/WEEK
  4. SYNTHROID [Concomitant]
     Active Substance: LEVOTHYROXINE SODIUM
     Indication: Thyroidectomy
  5. CELLCEPT [Concomitant]
     Active Substance: MYCOPHENOLATE MOFETIL
     Indication: Lupus nephritis
     Dosage: 1000 MG, 2X/DAY
  6. ENOXAPARIN [Concomitant]
     Active Substance: ENOXAPARIN
     Indication: Antiphospholipid syndrome
     Dosage: 0.4 ML, DAILY
     Route: 058
  7. FLUDROCORTISONE [Concomitant]
     Active Substance: FLUDROCORTISONE
     Indication: Adrenal insufficiency
     Dosage: 0.15 MG, DAILY
  8. HYDROXYCHLOROQUINE [Concomitant]
     Active Substance: HYDROXYCHLOROQUINE
     Indication: Lupus nephritis
     Dosage: 200 MG, DAILY
  9. PREDNISONE [Concomitant]
     Active Substance: PREDNISONE
     Indication: Adrenal insufficiency
     Dosage: 10 MG, DAILY

REACTIONS (5)
  - Drug interaction [Recovered/Resolved]
  - Immunosuppressant drug level increased [Recovered/Resolved]
  - Nausea [Recovered/Resolved]
  - Vomiting [Recovered/Resolved]
  - Dehydration [Unknown]

NARRATIVE: CASE EVENT DATE: 20241216
